FAERS Safety Report 17471358 (Version 2)
Quarter: 2020Q1

REPORT INFORMATION
  Report Type: Spontaneous
  Country: DE (occurrence: DE)
  Receive Date: 20200227
  Receipt Date: 20200326
  Transmission Date: 20200409
  Serious: Yes (Hospitalization)
  Sender: FDA-Public Use
  Company Number: DE-AKCEA THERAPEUTICS-2020IS001096

PATIENT

DRUGS (1)
  1. TEGSEDI [Suspect]
     Active Substance: INOTERSEN SODIUM
     Indication: PRODUCT USED FOR UNKNOWN INDICATION
     Dosage: UNK
     Route: 065

REACTIONS (3)
  - Pleural effusion [Unknown]
  - Pericardial effusion [Unknown]
  - Ascites [Unknown]
